FAERS Safety Report 8484464-2 (Version None)
Quarter: 2012Q3

REPORT INFORMATION
  Report Type: 
  Country: None (occurrence: None)
  Receive Date: 20120703
  Receipt Date: 20120628
  Transmission Date: 20120928
  Serious: Yes (Death)
  Sender: FDA-Public Use
  Company Number: PHEH2012US012657

PATIENT
  Sex: Female

DRUGS (6)
  1. IBUPROFEN [Concomitant]
  2. OMEPRAZOLE [Concomitant]
  3. FASLODEX [Concomitant]
  4. ZOMETA [Suspect]
     Dosage: 4 MG/5ML, QMO
  5. CALCIUM [Concomitant]
  6. PERCOCET [Concomitant]

REACTIONS (1)
  - BREAST CANCER [None]
